FAERS Safety Report 11151446 (Version 2)
Quarter: 2016Q3

REPORT INFORMATION
  Report Type: Spontaneous
  Country: DK (occurrence: DK)
  Receive Date: 20150601
  Receipt Date: 20160815
  Transmission Date: 20161109
  Serious: Yes (Disabling)
  Sender: FDA-Public Use
  Company Number: DK-PFIZER INC-2015179178

PATIENT
  Age: 39 Year
  Sex: Male
  Weight: 78 kg

DRUGS (2)
  1. SALAZOPYRIN EN-TABS [Suspect]
     Active Substance: SULFASALAZINE
     Indication: ARTHRITIS
     Dosage: 500 MG, DAILY (1 TABLET DAILY): WEEK 1
     Route: 048
     Dates: start: 20130501, end: 201305
  2. SALAZOPYRIN EN-TABS [Suspect]
     Active Substance: SULFASALAZINE
     Dosage: 1000 MG, DAILY (2 TABLETS DAILY): WEEK 2
     Route: 048
     Dates: start: 201305, end: 20130515

REACTIONS (4)
  - Tinnitus [Not Recovered/Not Resolved]
  - Anosmia [Recovered/Resolved]
  - Ageusia [Recovered/Resolved]
  - Hypoacusis [Not Recovered/Not Resolved]

NARRATIVE: CASE EVENT DATE: 20130515
